FAERS Safety Report 24825899 (Version 5)
Quarter: 2025Q3

REPORT INFORMATION
  Report Type: Report from Study
  Country: US (occurrence: US)
  Receive Date: 20250109
  Receipt Date: 20250803
  Transmission Date: 20251021
  Serious: Yes (Other)
  Sender: ALEXION PHARMACEUTICALS
  Company Number: US-ASTRAZENECA-202501USA003331US

PATIENT
  Age: 8 Year
  Sex: Male
  Weight: 23 kg

DRUGS (2)
  1. STRENSIQ [Suspect]
     Active Substance: ASFOTASE ALFA
     Indication: Hypophosphatasia
     Dosage: 2 MILLIGRAM/KILOGRAM, TIW
     Dates: start: 202412
  2. BENADRYL [Concomitant]
     Active Substance: DIPHENHYDRAMINE HYDROCHLORIDE

REACTIONS (10)
  - Haematoma infection [Recovered/Resolved]
  - Gait disturbance [Recovering/Resolving]
  - Sitting disability [Recovering/Resolving]
  - Injection site haematoma [Recovered/Resolved]
  - Fat tissue decreased [Unknown]
  - Injection site infection [Unknown]
  - Injection site reaction [Recovering/Resolving]
  - Injection site warmth [Unknown]
  - Injection site swelling [Unknown]
  - Limb discomfort [Unknown]

NARRATIVE: CASE EVENT DATE: 20250117
